FAERS Safety Report 15756618 (Version 1)
Quarter: 2018Q4

REPORT INFORMATION
  Report Type: Spontaneous
  Country: ES (occurrence: ES)
  Receive Date: 20181224
  Receipt Date: 20181224
  Transmission Date: 20190205
  Serious: Yes (Hospitalization, Other)
  Sender: FDA-Public Use
  Company Number: ES-IPSEN BIOPHARMACEUTICALS, INC.-2018-19564

PATIENT
  Age: 52 Year
  Sex: Male

DRUGS (24)
  1. ONIVYDE [Suspect]
     Active Substance: IRINOTECAN HYDROCHLORIDE
     Route: 042
  2. FLUOROURACIL. [Suspect]
     Active Substance: FLUOROURACIL
     Route: 042
  3. LEUCOVORIN. [Suspect]
     Active Substance: LEUCOVORIN
     Dosage: 400 MG/M2
     Route: 042
  4. TN UNSPECIFIED (OXALIPLATIN) [Suspect]
     Active Substance: OXALIPLATIN
     Dosage: 85 MG/M2
     Route: 042
  5. ZALTRAP [Suspect]
     Active Substance: ZIV-AFLIBERCEPT
     Dosage: 4 MG/KG
     Route: 042
  6. ZALTRAP [Suspect]
     Active Substance: ZIV-AFLIBERCEPT
     Dosage: 4 MG/KG
     Route: 042
  7. FLUOROURACIL. [Suspect]
     Active Substance: FLUOROURACIL
     Indication: METASTASES TO LIVER
     Route: 042
  8. TN UNSPECIFIED [Suspect]
     Active Substance: TROLNITRATE
     Indication: METASTASES TO LIVER
     Dosage: 5 MG/KG
     Route: 042
  9. TN UNSPECIFIED [Suspect]
     Active Substance: TROLNITRATE
     Dosage: 5 MG/KG
     Route: 042
  10. LEUCOVORIN. [Suspect]
     Active Substance: LEUCOVORIN
     Dosage: 400 MG/M2
     Route: 042
  11. TN UNSPECIFIED (OXALIPLATIN) [Suspect]
     Active Substance: OXALIPLATIN
     Dosage: 85 MG/M2
     Route: 042
  12. ZALTRAP [Suspect]
     Active Substance: ZIV-AFLIBERCEPT
     Dosage: 4 MG/KG
     Route: 042
  13. TN UNSPECIFIED (OXALIPLATIN) [Suspect]
     Active Substance: OXALIPLATIN
     Indication: METASTASES TO LIVER
     Dosage: 85 MG/M2
     Route: 042
  14. ONIVYDE [Suspect]
     Active Substance: IRINOTECAN HYDROCHLORIDE
     Indication: METASTASES TO LIVER
     Route: 042
  15. ONIVYDE [Suspect]
     Active Substance: IRINOTECAN HYDROCHLORIDE
     Indication: OFF LABEL USE
     Route: 042
  16. FLUOROURACIL. [Suspect]
     Active Substance: FLUOROURACIL
     Route: 042
  17. LEUCOVORIN. [Suspect]
     Active Substance: LEUCOVORIN
     Indication: METASTASES TO LIVER
     Dosage: 400 MG/M2
     Route: 042
  18. ZALTRAP [Suspect]
     Active Substance: ZIV-AFLIBERCEPT
     Indication: METASTASES TO LIVER
     Dosage: 4 MG/KG
     Route: 042
  19. LEUCOVORIN. [Suspect]
     Active Substance: LEUCOVORIN
     Dosage: 400 MG/M2
     Route: 042
  20. TN UNSPECIFIED (OXALIPLATIN) [Suspect]
     Active Substance: OXALIPLATIN
     Dosage: 85 MG/M2
     Route: 042
  21. FLUOROURACIL. [Suspect]
     Active Substance: FLUOROURACIL
     Route: 042
  22. TN UNSPECIFIED [Suspect]
     Active Substance: TROLNITRATE
     Dosage: 5 MG/KG
     Route: 042
  23. ONIVYDE [Suspect]
     Active Substance: IRINOTECAN HYDROCHLORIDE
     Route: 042
  24. TN UNSPECIFIED [Suspect]
     Active Substance: TROLNITRATE
     Dosage: 5 MG/KG
     Route: 042

REACTIONS (7)
  - Diarrhoea [Unknown]
  - Neuropathy peripheral [Unknown]
  - Dysphonia [Unknown]
  - Asthenia [Unknown]
  - Thrombocytopenia [Unknown]
  - Disease progression [Unknown]
  - Neutropenia [Unknown]

NARRATIVE: CASE EVENT DATE: 2018
